FAERS Safety Report 9909808 (Version 2)
Quarter: 2014Q1

REPORT INFORMATION
  Report Type: Spontaneous
  Country: US (occurrence: US)
  Receive Date: 20140219
  Receipt Date: 20140219
  Transmission Date: 20141002
  Serious: No
  Sender: FDA-Public Use
  Company Number: US-GILEAD-2012-0054290

PATIENT
  Sex: Female

DRUGS (11)
  1. LETAIRIS [Suspect]
     Indication: PULMONARY ARTERIAL HYPERTENSION
     Dosage: 5 MG, UNK
     Route: 048
     Dates: start: 20120405
  2. DIOVAN [Concomitant]
  3. ADCIRCA [Concomitant]
  4. PROZAC [Concomitant]
  5. NEXIUM                             /01479302/ [Concomitant]
  6. TOPAMAX [Concomitant]
  7. FLUTICASONE PROPIONATE [Concomitant]
  8. ALBUTEROL SULFATE [Concomitant]
  9. MYLICON [Concomitant]
  10. PROVIGIL [Concomitant]
  11. HYDROCHLOROTHIAZIDE W/METOPROLOL [Concomitant]

REACTIONS (1)
  - Sleep disorder [Unknown]
